FAERS Safety Report 26009312 (Version 1)
Quarter: 2025Q4

REPORT INFORMATION
  Report Type: Spontaneous
  Country: CA (occurrence: CA)
  Receive Date: 20251107
  Receipt Date: 20251107
  Transmission Date: 20260118
  Serious: Yes (Hospitalization)
  Sender: ACCORD
  Company Number: None

PATIENT
  Sex: Female

DRUGS (5)
  1. TOPIRAMATE [Suspect]
     Active Substance: TOPIRAMATE
     Indication: Migraine
  2. CANDESARTAN CILEXETIL AND HYDROCHLOROTHIAZIDE [Suspect]
     Active Substance: CANDESARTAN CILEXETIL\HYDROCHLOROTHIAZIDE
     Indication: Migraine
     Dosage: 1 EVERY 1 DAYS
     Route: 048
  3. PROPRANOLOL [Suspect]
     Active Substance: PROPRANOLOL HYDROCHLORIDE
     Indication: Migraine
     Route: 065
  4. SUMATRIPTAN [Concomitant]
     Active Substance: SUMATRIPTAN
  5. ELAVIL [Concomitant]
     Active Substance: AMITRIPTYLINE HYDROCHLORIDE

REACTIONS (12)
  - Hypoaesthesia [Unknown]
  - Off label use [Unknown]
  - Paraesthesia oral [Unknown]
  - Dizziness [Unknown]
  - Headache [Unknown]
  - Dermatitis contact [Unknown]
  - Flushing [Unknown]
  - Migraine with aura [Unknown]
  - Drug intolerance [Unknown]
  - Poor quality sleep [Unknown]
  - Dry mouth [Unknown]
  - Perfume sensitivity [Unknown]
